FAERS Safety Report 5753355-X (Version None)
Quarter: 2008Q2

REPORT INFORMATION
  Report Type: 
  Country: None (occurrence: None)
  Receive Date: 20080530
  Receipt Date: 20080528
  Transmission Date: 20081010
  Serious: Yes (Death, Other)
  Sender: FDA-Public Use
  Company Number: US-BRISTOL-MYERS SQUIBB COMPANY-14208581

PATIENT
  Sex: Female

DRUGS (2)
  1. COUMADIN [Suspect]
  2. AVELOX [Suspect]
     Route: 048

REACTIONS (3)
  - DEATH [None]
  - FALL [None]
  - HAEMATOMA [None]
